FAERS Safety Report 10624669 (Version 1)
Quarter: 2014Q4

REPORT INFORMATION
  Report Type: Spontaneous
  Country: US (occurrence: US)
  Receive Date: 20141203
  Receipt Date: 20141203
  Transmission Date: 20150529
  Serious: No
  Sender: FDA-Public Use
  Company Number: US-ASTRAZENECA-2014SE82568

PATIENT
  Sex: Male

DRUGS (1)
  1. TOPROL XL [Suspect]
     Active Substance: METOPROLOL SUCCINATE
     Indication: HEART RATE INCREASED
     Route: 048

REACTIONS (3)
  - Pruritus [Unknown]
  - Drug dose omission [Unknown]
  - Medication error [Unknown]

NARRATIVE: CASE EVENT DATE: 201409
